FAERS Safety Report 7836599-2 (Version None)
Quarter: 2011Q4

REPORT INFORMATION
  Report Type: 
  Country: None (occurrence: None)
  Receive Date: 20111024
  Receipt Date: 20110705
  Transmission Date: 20120403
  Serious: No
  Sender: FDA-Public Use
  Company Number: US-ABBOTT-11P-163-0837319-00

PATIENT
  Sex: Female
  Weight: 83.99 kg

DRUGS (1)
  1. LUPRON DEPOT [Suspect]
     Indication: ENDOMETRIOSIS
     Dates: start: 20110401

REACTIONS (6)
  - VAGINAL HAEMORRHAGE [None]
  - MALAISE [None]
  - METRORRHAGIA [None]
  - DYSMENORRHOEA [None]
  - NIGHT SWEATS [None]
  - SLUGGISHNESS [None]
